FAERS Safety Report 5586271-7 (Version None)
Quarter: 2007Q4

REPORT INFORMATION
  Report Type: 
  Country: None (occurrence: None)
  Receive Date: 20071212
  Receipt Date: 20070504
  Transmission Date: 20080405
  Serious: Yes (Other)
  Sender: FDA-Public Use
  Company Number: USA-2007-0027259

PATIENT
  Sex: Male

DRUGS (3)
  1. OXYCONTIN [Suspect]
     Indication: POST PROCEDURAL DISCOMFORT
     Dosage: 40 MG, Q8H, ORAL
     Route: 048
     Dates: start: 20070124, end: 20070407
  2. OXYCODONE HCL [Suspect]
     Indication: BREAKTHROUGH PAIN
     Dosage: 10 MG, Q4H, PRN, ORAL
     Route: 048
     Dates: start: 20070124
  3. HYDROCODONE W/ACETAMINOPHEN (PARACETAMOL, HYDROCODONE BITARTRATE) [Suspect]
     Indication: POST PROCEDURAL DISCOMFORT
     Dosage: 2 TABLET, Q4H PRN, ORAL
     Route: 048
     Dates: start: 20070408, end: 20070417

REACTIONS (1)
  - POLYSUBSTANCE DEPENDENCE [None]
